FAERS Safety Report 5080148-1 (Version None)
Quarter: 2006Q3

REPORT INFORMATION
  Report Type: 
  Country: None (occurrence: None)
  Receive Date: 20060810
  Receipt Date: 20060801
  Transmission Date: 20061208
  Serious: Yes (Hospitalization, Disabling, Other)
  Sender: FDA-Public Use
  Company Number: 2006094822

PATIENT
  Age: 20 Year
  Sex: Female

DRUGS (4)
  1. HEPARIN SODIUM [Suspect]
     Indication: ANGIOGRAM
     Dosage: INTRAVENOUS
     Route: 042
  2. AMLODIPINE [Suspect]
     Indication: DRUG USE FOR UNKNOWN INDICATION
  3. WARFARIN SODIUM [Concomitant]
  4. ENALAPRIL MALEATE [Concomitant]

REACTIONS (23)
  - ABDOMINAL PAIN UPPER [None]
  - ACUTE RESPIRATORY DISTRESS SYNDROME [None]
  - ARTERIAL THROMBOSIS [None]
  - AURICULAR SWELLING [None]
  - CEREBRAL VENOUS THROMBOSIS [None]
  - EAR PAIN [None]
  - GENERAL PHYSICAL HEALTH DETERIORATION [None]
  - GRAND MAL CONVULSION [None]
  - HAEMODIALYSIS [None]
  - HAEMOLYTIC ANAEMIA [None]
  - HEPATIC INFARCTION [None]
  - LUNG CONSOLIDATION [None]
  - LUNG INFILTRATION [None]
  - PLEURAL EFFUSION [None]
  - PYREXIA [None]
  - RED BLOOD CELL SCHISTOCYTES PRESENT [None]
  - RENAL ARTERY THROMBOSIS [None]
  - RENAL FAILURE [None]
  - RESPIRATORY DISTRESS [None]
  - RESPIRATORY FAILURE [None]
  - RHINALGIA [None]
  - THROMBOCYTOPENIA [None]
  - VOMITING [None]
